FAERS Safety Report 6418700-0 (Version None)
Quarter: 2009Q4

REPORT INFORMATION
  Report Type: 
  Country: None (occurrence: None)
  Receive Date: 20091026
  Receipt Date: 20091013
  Transmission Date: 20100525
  Serious: Yes (Death, Other)
  Sender: FDA-Public Use
  Company Number: ADR39032009

PATIENT
  Sex: Female

DRUGS (3)
  1. SIMVASTATIN [Suspect]
     Dosage: ORAL
     Route: 048
  2. DIGOXIN [Concomitant]
  3. DIPYRIDAMOLE [Concomitant]

REACTIONS (1)
  - CEREBROVASCULAR ACCIDENT [None]
